FAERS Safety Report 8365687-X (Version None)
Quarter: 2012Q2

REPORT INFORMATION
  Report Type: 
  Country: None (occurrence: None)
  Receive Date: 20120516
  Receipt Date: 20120503
  Transmission Date: 20120825
  Serious: Yes (Other)
  Sender: FDA-Public Use
  Company Number: GB-MYLANLABS-2012S1009374

PATIENT
  Age: 63 Year
  Sex: Male

DRUGS (1)
  1. CETIRIZINE [Suspect]
     Indication: PRURITUS
     Route: 065

REACTIONS (3)
  - HYPERSENSITIVITY [None]
  - TUBULOINTERSTITIAL NEPHRITIS [None]
  - RENAL FAILURE ACUTE [None]
